FAERS Safety Report 5035259-3 (Version None)
Quarter: 2006Q2

REPORT INFORMATION
  Report Type: 
  Country: None (occurrence: None)
  Receive Date: 20060627
  Receipt Date: 20060531
  Transmission Date: 20061013
  Serious: Yes (Hospitalization)
  Sender: FDA-Public Use
  Company Number: US-ROCHE-450211

PATIENT
  Age: 53 Year
  Sex: Female
  Weight: 78.5 kg

DRUGS (9)
  1. PEG-INTERFERON A-2A (RO 25-8310) [Suspect]
     Route: 058
     Dates: start: 20060421
  2. RIBAVIRIN [Suspect]
     Route: 048
     Dates: start: 20060421
  3. FERROUS SULFATE TAB [Concomitant]
     Indication: ANAEMIA PROPHYLAXIS
     Route: 048
     Dates: start: 20060307
  4. ASCORBIC ACID [Concomitant]
     Indication: ANAEMIA PROPHYLAXIS
     Route: 048
     Dates: start: 20060307
  5. FOLIC ACID [Concomitant]
     Indication: ANAEMIA PROPHYLAXIS
     Route: 048
     Dates: start: 20060307
  6. METFORMIN [Concomitant]
     Route: 048
     Dates: start: 20051115
  7. CRESTOR [Concomitant]
     Route: 048
     Dates: start: 20051115
  8. DYAZIDE [Concomitant]
     Indication: EAR DISORDER
     Dosage: DOSE = 37.5/25 QD
     Dates: start: 19930615
  9. GLUCOPHAGE [Concomitant]

REACTIONS (4)
  - LYMPHADENITIS [None]
  - NECK MASS [None]
  - PYREXIA [None]
  - SALIVARY DUCT OBSTRUCTION [None]
